FAERS Safety Report 5135758-X (Version None)
Quarter: 2006Q4

REPORT INFORMATION
  Report Type: 
  Country: None (occurrence: None)
  Receive Date: 20061020
  Receipt Date: 20061005
  Transmission Date: 20070319
  Serious: Yes (Life-Threatening, Hospitalization)
  Sender: FDA-Public Use
  Company Number: REM_00279_2006

PATIENT
  Age: 20 Year
  Sex: Female
  Weight: 124 kg

DRUGS (7)
  1. REMODULIN [Suspect]
     Indication: PULMONARY HYPERTENSION
     Dosage: 6 NG/KG/MIN CONTINUOUS IV
     Route: 042
     Dates: start: 20060501
  2. WARFARIN SODIUM [Concomitant]
  3. RISPERIDONE [Concomitant]
  4. ESCITALOPRAM [Concomitant]
  5. LOPERAMIDE [Concomitant]
  6. LORAZEPAM [Concomitant]
  7. TRAZODONE HCL [Concomitant]

REACTIONS (8)
  - BLOOD CULTURE POSITIVE [None]
  - CENTRAL LINE INFECTION [None]
  - DIARRHOEA [None]
  - DRUG INEFFECTIVE [None]
  - HYPOTENSION [None]
  - KLEBSIELLA INFECTION [None]
  - RESPIRATORY DISORDER [None]
  - SEPSIS [None]
